FAERS Safety Report 23871654 (Version 1)
Quarter: 2024Q2

REPORT INFORMATION
  Report Type: Spontaneous
  Country: BR (occurrence: BR)
  Receive Date: 20240519
  Receipt Date: 20240519
  Transmission Date: 20240716
  Serious: Yes (Other)
  Sender: FDA-Public Use
  Company Number: BR-CELLTRION INC.-2024BR011337

PATIENT

DRUGS (1)
  1. INFLIXIMAB [Suspect]
     Active Substance: INFLIXIMAB
     Indication: Crohn^s disease
     Dosage: 3/5 AMPOULES EVERY 30 DAYS (STOP DATE: 7 MONTHS AGO)
     Route: 042
     Dates: start: 2020

REACTIONS (5)
  - Anxiety [Unknown]
  - Pain [Unknown]
  - Depression [Unknown]
  - Intentional dose omission [Unknown]
  - Intentional product use issue [Unknown]
